FAERS Safety Report 15842666 (Version 1)
Quarter: 2019Q1

REPORT INFORMATION
  Report Type: Spontaneous
  Country: US (occurrence: US)
  Receive Date: 20190118
  Receipt Date: 20190118
  Transmission Date: 20190417
  Serious: Yes (Disabling)
  Sender: FDA-Public Use
  Company Number: None

PATIENT
  Age: 21 Year
  Sex: Female
  Weight: 117 kg

DRUGS (3)
  1. NEXPLANON [Suspect]
     Active Substance: ETONOGESTREL
     Indication: CONTRACEPTION
     Dosage: ?          OTHER FREQUENCY:ONCE PER 3 YRS;OTHER ROUTE:UNDER SKIN IMPLANT?
     Dates: start: 20170930, end: 20171231
  2. OXECARBAZEPINE 300MG [Concomitant]
  3. ALEVE [Concomitant]
     Active Substance: NAPROXEN SODIUM

REACTIONS (8)
  - Complication associated with device [None]
  - Infertility female [None]
  - Crying [None]
  - Adnexa uteri pain [None]
  - Mood swings [None]
  - Menstruation irregular [None]
  - Polycystic ovaries [None]
  - Amenorrhoea [None]

NARRATIVE: CASE EVENT DATE: 20171220
